FAERS Safety Report 5859965-3 (Version None)
Quarter: 2008Q3

REPORT INFORMATION
  Report Type: 
  Country: None (occurrence: None)
  Receive Date: 20080827
  Receipt Date: 20080818
  Transmission Date: 20090109
  Serious: Yes (Hospitalization)
  Sender: FDA-Public Use
  Company Number: DK-ASTRAZENECA-2008SE03954

PATIENT
  Sex: Female
  Weight: 62.8 kg

DRUGS (11)
  1. NEXIUM [Suspect]
     Indication: REFLUX GASTRITIS
     Dosage: 20 MILLIGRAM(S)
     Route: 048
     Dates: start: 20080308, end: 20080813
  2. KALEORID [Concomitant]
     Indication: ELECTROLYTE SUBSTITUTION THERAPY
     Dosage: 750 MILLIGRAM(S)
     Route: 048
     Dates: start: 20060101
  3. FURIX [Concomitant]
     Indication: DIURETIC THERAPY
     Dosage: 40 MILLIGRAM(S)
     Route: 048
     Dates: start: 20060101
  4. DIAZEPAM [Concomitant]
     Indication: SEDATIVE THERAPY
     Dates: start: 20070101
  5. UNIKALK [Concomitant]
     Indication: MINERAL SUPPLEMENTATION
  6. PREDNISOLON ^DAK^ [Concomitant]
     Indication: PULMONARY FIBROSIS
     Dosage: 5 MILLIGRAM(S)
     Route: 048
     Dates: start: 20060101
  7. IMUREL [Concomitant]
     Indication: PULMONARY FIBROSIS
     Dosage: 50 MILLIGRAM(S)
     Route: 048
     Dates: start: 20060101
  8. DIGOXIN ^DAK^ [Concomitant]
     Indication: ATRIAL FIBRILLATION
     Dosage: 62.5 MICROGRAM(S)
     Route: 048
     Dates: start: 20070101
  9. VERALOC RETARD [Concomitant]
     Indication: ATRIAL FIBRILLATION
     Dosage: 200 MILLIGRAM(S)
     Route: 048
     Dates: start: 20070101
  10. TRIOBE [Concomitant]
     Indication: HYPOVITAMINOSIS
     Route: 048
     Dates: start: 20080101
  11. MAGNESIA [Concomitant]
     Indication: CONSTIPATION
     Dates: start: 20080101

REACTIONS (1)
  - CUTANEOUS LUPUS ERYTHEMATOSUS [None]
